FAERS Safety Report 19505726 (Version 1)
Quarter: 2021Q3

REPORT INFORMATION
  Report Type: Spontaneous
  Country: TW (occurrence: TW)
  Receive Date: 20210708
  Receipt Date: 20210708
  Transmission Date: 20211014
  Serious: Yes (Other)
  Sender: FDA-Public Use
  Company Number: TW-TOPROL-2021000139

PATIENT
  Age: 65 Year
  Sex: Male

DRUGS (2)
  1. PROBIOTIC [Concomitant]
     Active Substance: PROBIOTICS NOS
  2. BETALOC ZOK [Suspect]
     Active Substance: METOPROLOL SUCCINATE
     Dosage: FOR MORE THAN 10 YEARS
     Route: 048
     Dates: start: 2011

REACTIONS (4)
  - Constipation [Unknown]
  - Palpitations [Unknown]
  - Feeling cold [Unknown]
  - Drug ineffective [Unknown]
